FAERS Safety Report 24919665 (Version 2)
Quarter: 2025Q1

REPORT INFORMATION
  Report Type: Spontaneous
  Country: AU (occurrence: AU)
  Receive Date: 20250204
  Receipt Date: 20250319
  Transmission Date: 20250408
  Serious: Yes (Hospitalization, Other)
  Sender: LUPIN
  Company Number: AU-MLMSERVICE-20250115-PI350465-00229-2

PATIENT
  Sex: Male

DRUGS (17)
  1. MORPHINE SULFATE [Suspect]
     Active Substance: MORPHINE SULFATE
     Indication: Cancer pain
     Dosage: 150 MILLIGRAM, BID (MORPHINE MODIFIED RELEASE 150 MG TWO TIMES PER DAY, MORPHINE MODIFIED RELEASE AND IMMEDIATE RELEASE )
     Route: 065
  2. MORPHINE SULFATE [Suspect]
     Active Substance: MORPHINE SULFATE
     Route: 065
  3. MORPHINE SULFATE [Suspect]
     Active Substance: MORPHINE SULFATE
     Dosage: 60 MILLIGRAM, QD (SLOW-RELEASE PRODUCT AND TOLERATED TO A DOSE OF 60 MG/DAY)
     Route: 065
  4. ACETAMINOPHEN [Suspect]
     Active Substance: ACETAMINOPHEN
     Indication: Cancer pain
     Dosage: 1 GRAM, QID
     Route: 065
  5. PREGABALIN [Suspect]
     Active Substance: PREGABALIN
     Indication: Cancer pain
     Dosage: 150 MG, BID
     Route: 065
  6. OXYCODONE [Suspect]
     Active Substance: OXYCODONE
     Indication: Cancer pain
     Dosage: 100 MG, BID
     Route: 065
  7. OXYCODONE [Suspect]
     Active Substance: OXYCODONE
     Route: 065
  8. FENTANYL [Suspect]
     Active Substance: FENTANYL
     Indication: Cancer pain
     Route: 065
  9. FENTANYL [Suspect]
     Active Substance: FENTANYL
     Route: 065
  10. GABAPENTIN [Suspect]
     Active Substance: GABAPENTIN
     Indication: Cancer pain
     Dosage: 300 MG, TID
     Route: 065
  11. PARECOXIB [Suspect]
     Active Substance: PARECOXIB
     Indication: Cancer pain
     Dosage: 40 MG, QD
     Route: 065
  12. KETAMINE [Suspect]
     Active Substance: KETAMINE
     Indication: Cancer pain
     Route: 065
  13. LIDOCAINE [Suspect]
     Active Substance: LIDOCAINE
     Indication: Cancer pain
     Dosage: UNK, QD, ONCE DAILY
     Route: 065
  14. IPILIMUMAB [Concomitant]
     Active Substance: IPILIMUMAB
     Indication: Pleural mesothelioma malignant
     Route: 065
  15. NIVOLUMAB [Concomitant]
     Active Substance: NIVOLUMAB
     Indication: Pleural mesothelioma malignant
     Route: 065
  16. CISPLATIN [Concomitant]
     Active Substance: CISPLATIN
     Indication: Pleural mesothelioma malignant
     Route: 065
  17. PEMETREXED [Concomitant]
     Active Substance: PEMETREXED
     Indication: Pleural mesothelioma malignant
     Route: 065

REACTIONS (7)
  - Therapeutic product effect incomplete [Unknown]
  - Cognitive disorder [Unknown]
  - Neurotoxicity [Unknown]
  - Drug intolerance [Unknown]
  - Myoclonus [Recovering/Resolving]
  - Somnolence [Recovering/Resolving]
  - Confusional state [Recovering/Resolving]
